FAERS Safety Report 7731453-9 (Version None)
Quarter: 2011Q3

REPORT INFORMATION
  Report Type: 
  Country: None (occurrence: None)
  Receive Date: 20110906
  Receipt Date: 20110901
  Transmission Date: 20111222
  Serious: Yes (Hospitalization)
  Sender: FDA-Public Use
  Company Number: US-VERTEX PHARMACEUTICALS INC.-AE-2011-001046

PATIENT
  Sex: Female
  Weight: 80 kg

DRUGS (12)
  1. PEGASYS [Concomitant]
     Indication: HEPATITIS C
     Dates: start: 20110811, end: 20110823
  2. ASPIRIN [Concomitant]
     Route: 048
  3. NEXIUM [Concomitant]
     Route: 048
  4. RIBAVIRIN [Concomitant]
     Indication: HEPATITIS C
     Dates: start: 20110811, end: 20110823
  5. INCIVEK [Suspect]
     Indication: HEPATITIS C
     Dates: start: 20110811, end: 20110823
  6. EXFORGE [Concomitant]
     Route: 048
  7. TRAMADOL HYDROCHLORIDE [Concomitant]
  8. LACTULOSE [Concomitant]
     Route: 048
  9. LORTAB [Concomitant]
  10. AMBIEN [Concomitant]
     Route: 048
  11. BENEFIBER [Concomitant]
  12. RIBAVIRIN [Concomitant]
     Dates: start: 20110811, end: 20110823

REACTIONS (6)
  - DIZZINESS [None]
  - WHITE BLOOD CELL COUNT DECREASED [None]
  - LOSS OF CONSCIOUSNESS [None]
  - VOMITING [None]
  - NEUTROPHIL COUNT DECREASED [None]
  - HAEMOGLOBIN DECREASED [None]
